FAERS Safety Report 9916985 (Version 1)
Quarter: 2014Q1

REPORT INFORMATION
  Report Type: Spontaneous
  Country: US (occurrence: US)
  Receive Date: 20140221
  Receipt Date: 20140221
  Transmission Date: 20141002
  Serious: Yes (Other)
  Sender: FDA-Public Use
  Company Number: US-LUNDBECK-DKLU1097535

PATIENT
  Sex: Male

DRUGS (2)
  1. ONFI [Suspect]
     Indication: CONVULSION
  2. PERIACTIN [Suspect]
     Indication: DECREASED APPETITE

REACTIONS (1)
  - Bone marrow failure [Unknown]
